FAERS Safety Report 5132030-9 (Version None)
Quarter: 2006Q4

REPORT INFORMATION
  Report Type: 
  Country: None (occurrence: None)
  Receive Date: 20061017
  Receipt Date: 20061004
  Transmission Date: 20070319
  Serious: Yes (Hospitalization, Other)
  Sender: FDA-Public Use
  Company Number: 2006101751

PATIENT
  Age: 70 Year
  Sex: Female
  Weight: 64 kg

DRUGS (15)
  1. ZYVOX [Suspect]
     Indication: ENTEROCOCCAL INFECTION
     Dosage: 1200 MG (600 MG, 1 IN 12 HR), INTRAVENOUS
     Route: 042
     Dates: start: 20060619
  2. ZYVOX [Suspect]
     Indication: STAPHYLOCOCCAL INFECTION
     Dosage: 1200 MG (600 MG, 1 IN 12 HR), INTRAVENOUS
     Route: 042
     Dates: start: 20060619
  3. ZYVOX [Suspect]
     Indication: ENTEROCOCCAL INFECTION
     Dosage: 1200 MG (600 MG,1 IN 12 HR), ORAL
     Route: 048
     Dates: start: 20060629
  4. ZYVOX [Suspect]
     Indication: STAPHYLOCOCCAL INFECTION
     Dosage: 1200 MG (600 MG,1 IN 12 HR), ORAL
     Route: 048
     Dates: start: 20060629
  5. VITAMN C (VITAMIN C) [Concomitant]
  6. DIOVAN [Concomitant]
  7. NEURONTIN [Concomitant]
  8. LOPRESSOR [Concomitant]
  9. OSCAL (CALCIUM CARBONATE) [Concomitant]
  10. PERI-COLACE [Concomitant]
  11. LASIX [Concomitant]
  12. CARAFARTE (SUCRALFATE) [Concomitant]
  13. POTASSIUM (POTASSIUM) [Concomitant]
  14. PROTONIX [Concomitant]
  15. PREDNISONE TAB [Concomitant]

REACTIONS (7)
  - BONE DISORDER [None]
  - ENTEROCOCCAL INFECTION [None]
  - INVESTIGATION ABNORMAL [None]
  - OSTEOMYELITIS [None]
  - PANCYTOPENIA [None]
  - PATHOGEN RESISTANCE [None]
  - STAPHYLOCOCCAL INFECTION [None]
